FAERS Safety Report 10618757 (Version 3)
Quarter: 2015Q2

REPORT INFORMATION
  Report Type: Spontaneous
  Country: US (occurrence: US)
  Receive Date: 20141202
  Receipt Date: 20150422
  Transmission Date: 20150821
  Serious: No
  Sender: FDA-Public Use
  Company Number: US-PFIZER INC-2014326451

PATIENT
  Age: 42 Year
  Sex: Female
  Weight: 54 kg

DRUGS (5)
  1. AZITHROMYCIN [Suspect]
     Active Substance: AZITHROMYCIN ANHYDROUS
     Indication: UPPER RESPIRATORY TRACT INFECTION
     Dosage: 250 MG, UNK
     Dates: end: 20141124
  2. AZITHROMYCIN [Suspect]
     Active Substance: AZITHROMYCIN ANHYDROUS
     Indication: STREPTOCOCCAL INFECTION
     Dosage: 500 MG, UNK
     Dates: start: 20141121
  3. AZITHROMYCIN [Suspect]
     Active Substance: AZITHROMYCIN ANHYDROUS
     Indication: PHARYNGITIS
  4. VICKS NYQUIL [Concomitant]
     Active Substance: ACETAMINOPHEN\DEXTROMETHORPHAN HYDROBROMIDE\DOXYLAMINE SUCCINATE
     Dosage: UNK, 1X/DAY
  5. VICKS DAYQUIL [Concomitant]
     Active Substance: DEXTROMETHORPHAN HYDROBROMIDE\GUAIFENESIN
     Dosage: UNK, 1X/DAY

REACTIONS (1)
  - Rash generalised [Not Recovered/Not Resolved]

NARRATIVE: CASE EVENT DATE: 20141123
